FAERS Safety Report 5991729-2 (Version None)
Quarter: 2008Q4

REPORT INFORMATION
  Report Type: 
  Country: None (occurrence: None)
  Receive Date: 20081211
  Receipt Date: 20080505
  Transmission Date: 20090506
  Serious: No
  Sender: FDA-Public Use
  Company Number: US-AMGEN-KDL277687

PATIENT
  Sex: Female

DRUGS (2)
  1. ENBREL [Suspect]
     Indication: RHEUMATOID ARTHRITIS
     Route: 058
     Dates: start: 20080317, end: 20080324
  2. METHOTREXATE [Concomitant]
     Dates: start: 20040101

REACTIONS (8)
  - FACIAL PAIN [None]
  - FATIGUE [None]
  - FEELING HOT [None]
  - LYMPHADENOPATHY [None]
  - MENORRHAGIA [None]
  - PAIN [None]
  - RENAL PAIN [None]
  - RHINITIS [None]
